FAERS Safety Report 6299716-4 (Version None)
Quarter: 2009Q3

REPORT INFORMATION
  Report Type: 
  Country: None (occurrence: None)
  Receive Date: 20090806
  Receipt Date: 20090727
  Transmission Date: 20100115
  Serious: Yes (Hospitalization)
  Sender: FDA-Public Use
  Company Number: TW-BAXTER-2009BH011696

PATIENT
  Sex: Male

DRUGS (5)
  1. DIANEAL [Suspect]
     Indication: PERITONEAL DIALYSIS
     Route: 033
     Dates: start: 20090701, end: 20090101
  2. DIANEAL [Suspect]
     Route: 033
     Dates: start: 20090601, end: 20090701
  3. DIANEAL [Suspect]
     Route: 033
     Dates: start: 20090401, end: 20090601
  4. NUTRINEAL PD4 UNKNOWN BAG [Suspect]
     Indication: PERITONEAL DIALYSIS
     Route: 033
     Dates: start: 20090601, end: 20090101
  5. NUTRINEAL PD4 UNKNOWN BAG [Suspect]
     Route: 033
     Dates: start: 20090401, end: 20090601

REACTIONS (1)
  - FUNGAL PERITONITIS [None]
